FAERS Safety Report 21753053 (Version 1)
Quarter: 2022Q4

REPORT INFORMATION
  Report Type: Spontaneous
  Country: US (occurrence: US)
  Receive Date: 20221220
  Receipt Date: 20221220
  Transmission Date: 20230112
  Serious: No
  Sender: FDA-Public Use
  Company Number: US-CELLTRION INC.-2022US001183

PATIENT

DRUGS (10)
  1. TRUXIMA [Suspect]
     Active Substance: RITUXIMAB-ABBS
     Indication: Product used for unknown indication
     Dosage: 375 MG/M2 EVERY 21 DAYS
     Dates: start: 20211118
  2. TRUXIMA [Suspect]
     Active Substance: RITUXIMAB-ABBS
     Dosage: 375 MG/M2 EVERY 21 DAYS
     Dates: start: 20220126
  3. BENDEKA [Suspect]
     Active Substance: BENDAMUSTINE HYDROCHLORIDE
     Indication: Product used for unknown indication
     Dosage: 90 MG/M2 IV DAILY X 2 DAYS. EVERY 21 DAYS
     Route: 042
     Dates: start: 20211118
  4. BENDEKA [Suspect]
     Active Substance: BENDAMUSTINE HYDROCHLORIDE
     Dosage: 90 MG/M2 IV DAILY X 2 DAYS EVERY 21 DAYS
     Route: 042
     Dates: start: 20220126
  5. DEXAMETHASONE [Suspect]
     Active Substance: DEXAMETHASONE
     Indication: Product used for unknown indication
     Dosage: 12 MG DAILY IV X 2 DAYS, EVERY 21 DAYS
     Route: 042
     Dates: start: 20211118
  6. DEXAMETHASONE [Suspect]
     Active Substance: DEXAMETHASONE
     Dosage: 12 MG DAILY IV X 2 DAYS, EVERY 21 DAYS
     Route: 042
     Dates: start: 20220126
  7. PALONOSETRON [Suspect]
     Active Substance: PALONOSETRON
     Indication: Product used for unknown indication
     Dosage: 0.25 MG IV, EVERY 21 DAYS
     Route: 042
     Dates: start: 20211118
  8. PALONOSETRON [Suspect]
     Active Substance: PALONOSETRON
     Dosage: 0.25 MG IV, EVERY 21 DAYS
     Route: 042
     Dates: start: 20220126
  9. ACETAMINOPHEN [Suspect]
     Active Substance: ACETAMINOPHEN
     Indication: Product used for unknown indication
     Dosage: 650 MG EVERY 21 DAYS
  10. DIPHENHYDRAMINE [Suspect]
     Active Substance: DIPHENHYDRAMINE
     Indication: Product used for unknown indication
     Dosage: 50 MG IVP EVERY 21 DAYS
     Route: 040

REACTIONS (1)
  - Pyrexia [Not Recovered/Not Resolved]

NARRATIVE: CASE EVENT DATE: 20220127
